FAERS Safety Report 7587931-9 (Version None)
Quarter: 2011Q3

REPORT INFORMATION
  Report Type: 
  Country: None (occurrence: None)
  Receive Date: 20110705
  Receipt Date: 20110622
  Transmission Date: 20111222
  Serious: Yes (Hospitalization)
  Sender: FDA-Public Use
  Company Number: JP-AMGEN-JPNSP2011032978

PATIENT
  Age: 67 Year
  Sex: Female
  Weight: 69 kg

DRUGS (14)
  1. RHEUMATREX [Suspect]
     Indication: RHEUMATOID ARTHRITIS
     Dosage: 8 MG, 1XWK
     Route: 048
     Dates: start: 20070420, end: 20091013
  2. FOLIC ACID [Concomitant]
     Dosage: UNK
     Route: 048
     Dates: start: 20060818, end: 20091013
  3. BASEN [Concomitant]
     Dosage: UNK
     Route: 048
  4. HYPOCA                             /01301601/ [Concomitant]
     Dosage: UNK
     Route: 048
  5. PRAVASTATIN SODIUM [Concomitant]
     Dosage: UNK
     Route: 048
  6. RHEUMATREX [Suspect]
     Dosage: UNK
     Route: 065
     Dates: start: 20030401
  7. ACTONEL [Concomitant]
     Dosage: UNK
     Route: 048
  8. METFORMIN HCL [Concomitant]
     Dosage: UNK
     Route: 048
  9. MUCOSTA [Concomitant]
     Dosage: UNK
     Route: 048
  10. ENBREL [Suspect]
     Indication: RHEUMATOID ARTHRITIS
     Dosage: 25 MG, 2X/WEEK
     Route: 058
     Dates: start: 20090619, end: 20091013
  11. PREDNISOLONE [Suspect]
     Indication: RHEUMATOID ARTHRITIS
     Dosage: 5 MG, 1X/DAY
     Route: 048
     Dates: start: 20060501
  12. GLIMICRON [Concomitant]
     Dosage: UNK
     Route: 048
  13. IMIDAPRIL [Concomitant]
     Dosage: UNK
     Route: 048
  14. LOXONIN [Concomitant]
     Dosage: UNK
     Route: 048

REACTIONS (1)
  - PNEUMOCYSTIS JIROVECI PNEUMONIA [None]
